FAERS Safety Report 4674114-5 (Version None)
Quarter: 2005Q2

REPORT INFORMATION
  Report Type: 
  Country: None (occurrence: None)
  Receive Date: 20050524
  Receipt Date: 20050524
  Transmission Date: 20051028
  Serious: Yes (Life-Threatening, Hospitalization)
  Sender: FDA-Public Use
  Company Number: None

PATIENT
  Age: 21 Year
  Sex: Male
  Weight: 59.8748 kg

DRUGS (5)
  1. GEODON [Suspect]
     Indication: BIPOLAR I DISORDER
     Dosage: 20 MG , 047, BID
     Dates: start: 20050403
  2. GEODON [Suspect]
     Indication: BIPOLAR I DISORDER
     Dosage: 20 MG , 047, BID
     Dates: start: 20050404
  3. VALPROIC ACID [Concomitant]
  4. BENZTROPINE [Concomitant]
  5. LORAZEPAM [Concomitant]

REACTIONS (13)
  - BLOOD PRESSURE INCREASED [None]
  - BRONCHOSPASM [None]
  - DROOLING [None]
  - DYSKINESIA [None]
  - DYSPHAGIA [None]
  - DYSPNOEA [None]
  - ERYTHEMA [None]
  - EXTRAPYRAMIDAL DISORDER [None]
  - GAZE PALSY [None]
  - MUSCLE SPASMS [None]
  - MUSCULOSKELETAL STIFFNESS [None]
  - SPEECH DISORDER [None]
  - URTICARIA [None]
